FAERS Safety Report 9501932 (Version 3)
Quarter: 2014Q1

REPORT INFORMATION
  Report Type: Spontaneous
  Country: JP (occurrence: JP)
  Receive Date: 20130905
  Receipt Date: 20140123
  Transmission Date: 20141002
  Serious: Yes (Death, Hospitalization, Other)
  Sender: FDA-Public Use
  Company Number: JP-CELGENEUS-087-21880-13083784

PATIENT
  Age: 86 Year
  Sex: Female
  Weight: 36.7 kg

DRUGS (16)
  1. REVLIMID [Suspect]
     Indication: PLASMA CELL MYELOMA
     Dosage: 15 MILLIGRAM
     Route: 048
     Dates: start: 20121210, end: 20121211
  2. REVLIMID [Suspect]
     Dosage: 10 MILLIGRAM
     Route: 048
     Dates: start: 20121212, end: 20121227
  3. REVLIMID [Suspect]
     Dosage: 10 MILLIGRAM
     Route: 048
     Dates: start: 20130109, end: 20130620
  4. LENADEX [Suspect]
     Indication: PLASMA CELL MYELOMA
     Dosage: 12 MILLIGRAM
     Route: 048
     Dates: start: 20121210, end: 20121213
  5. LENADEX [Suspect]
     Dosage: 12 MILLIGRAM
     Route: 048
     Dates: start: 20121217, end: 20121217
  6. LENADEX [Suspect]
     Dosage: 12 MILLIGRAM
     Route: 048
     Dates: start: 20121224, end: 20121224
  7. LENADEX [Suspect]
     Dosage: 12 MILLIGRAM
     Route: 048
     Dates: start: 20130109, end: 20130620
  8. VELCADE [Concomitant]
     Indication: PLASMA CELL MYELOMA
     Route: 065
  9. BLOOD TRANSFUSION [Concomitant]
     Indication: PRODUCT USED FOR UNKNOWN INDICATION
     Route: 041
     Dates: start: 20121206, end: 20121206
  10. BLOOD TRANSFUSION [Concomitant]
     Route: 041
     Dates: start: 20121225, end: 20121225
  11. BLOOD TRANSFUSION [Concomitant]
     Route: 041
     Dates: start: 20121230, end: 20121230
  12. BLOOD TRANSFUSION [Concomitant]
     Route: 041
     Dates: start: 20130828, end: 20130828
  13. BLOOD TRANSFUSION [Concomitant]
     Route: 041
     Dates: start: 20130908, end: 20130908
  14. BLOOD TRANSFUSION [Concomitant]
     Route: 041
     Dates: start: 20130911, end: 20130911
  15. BLOOD TRANSFUSION [Concomitant]
     Route: 041
     Dates: start: 20130920, end: 20130920
  16. BLOOD TRANSFUSION [Concomitant]
     Route: 041
     Dates: start: 20131001, end: 20131001

REACTIONS (3)
  - Breast cancer [Not Recovered/Not Resolved]
  - Pneumonia [Fatal]
  - Bone marrow failure [Recovered/Resolved]
